FAERS Safety Report 8054787-X (Version None)
Quarter: 2012Q1

REPORT INFORMATION
  Report Type: 
  Country: None (occurrence: None)
  Receive Date: 20120112
  Receipt Date: 20120106
  Transmission Date: 20120608
  Serious: Yes (Other)
  Sender: FDA-Public Use
  Company Number: 2012MA000373

PATIENT
  Age: 85 Year
  Sex: Male

DRUGS (7)
  1. QUININE SULFATE [Concomitant]
  2. LISINOPRIL [Concomitant]
  3. FINASTERIDE [Suspect]
     Dosage: 5 MG; QD; PO
     Route: 048
  4. ASPIRIN [Concomitant]
  5. BISOPROLOL [Concomitant]
  6. ACETAMINOPHEN [Concomitant]
  7. LANSOPRAZOLE [Concomitant]

REACTIONS (1)
  - CEREBROVASCULAR ACCIDENT [None]
